FAERS Safety Report 15192252 (Version 3)
Quarter: 2018Q3

REPORT INFORMATION
  Report Type: Spontaneous
  Country: ES (occurrence: ES)
  Receive Date: 20180724
  Receipt Date: 20180826
  Transmission Date: 20181010
  Serious: Yes (Other)
  Sender: FDA-Public Use
  Company Number: ES-SHIRE-ES201827110

PATIENT

DRUGS (1)
  1. 476 (MESALAZINE/MESALAMINE) [Suspect]
     Active Substance: MESALAMINE
     Indication: INFLAMMATORY BOWEL DISEASE
     Dosage: 20 MONTHS
     Route: 065

REACTIONS (2)
  - Cardiotoxicity [Recovered/Resolved]
  - Off label use [Unknown]
